FAERS Safety Report 10263224 (Version 2)
Quarter: 2014Q2

REPORT INFORMATION
  Report Type: Report from Study
  Country: US (occurrence: US)
  Receive Date: 20140626
  Receipt Date: 20140626
  Transmission Date: 20141212
  Serious: Yes (Other)
  Sender: FDA-Public Use
  Company Number: US-MYLANLABS-2014S1009456

PATIENT
  Age: 16 Year
  Sex: Male
  Weight: 124 kg

DRUGS (5)
  1. CLOZAPINE TABLETS [Suspect]
     Indication: BIPOLAR DISORDER
     Route: 048
     Dates: start: 2010, end: 20140516
  2. CLOZAPINE TABLETS [Suspect]
     Indication: BIPOLAR DISORDER
     Route: 048
     Dates: start: 20140519
  3. LITHIUM [Concomitant]
     Dosage: ER
     Route: 048
     Dates: start: 2010
  4. DESMOPRESSIN [Concomitant]
     Route: 048
     Dates: start: 2010
  5. BENZOTROPINE [Concomitant]
     Route: 048
     Dates: start: 2010

REACTIONS (1)
  - Granulocytopenia [Not Recovered/Not Resolved]
